FAERS Safety Report 14502027 (Version 2)
Quarter: 2018Q1

REPORT INFORMATION
  Report Type: Spontaneous
  Country: CO (occurrence: CO)
  Receive Date: 20180208
  Receipt Date: 20180217
  Transmission Date: 20180509
  Serious: Yes (Death)
  Sender: FDA-Public Use
  Company Number: CO-AUROBINDO-AUR-APL-2018-004101

PATIENT
  Sex: Male

DRUGS (3)
  1. COLISTIN [Concomitant]
     Active Substance: COLISTIN
     Indication: PRODUCT USED FOR UNKNOWN INDICATION
     Dosage: UNK
     Route: 065
     Dates: start: 20171217
  2. DORIPENEM. [Concomitant]
     Active Substance: DORIPENEM
     Indication: PRODUCT USED FOR UNKNOWN INDICATION
     Dosage: UNK
     Route: 065
     Dates: start: 20171217
  3. MEROGRAM 1000MG [Suspect]
     Active Substance: MEROPENEM
     Indication: ABDOMINAL SEPSIS
     Dosage: 1 G EACH 12 HOURS
     Route: 042
     Dates: start: 20171201

REACTIONS (1)
  - Treatment failure [Fatal]

NARRATIVE: CASE EVENT DATE: 20171201
